FAERS Safety Report 5024800-2 (Version None)
Quarter: 2006Q2

REPORT INFORMATION
  Report Type: 
  Country: None (occurrence: None)
  Receive Date: 20060613
  Receipt Date: 20060531
  Transmission Date: 20061013
  Serious: Yes (Hospitalization)
  Sender: FDA-Public Use
  Company Number: PHBS2006TW08419

PATIENT
  Age: 7 Year
  Sex: Female

DRUGS (2)
  1. DICLOFENAC POTASSIUM [Suspect]
     Indication: TONSILLITIS
     Dosage: 30 MG/DAY
     Route: 030
  2. CEFAZOLIN [Concomitant]
     Indication: TONSILLITIS
     Dosage: 700 MG/DAY
     Route: 042

REACTIONS (3)
  - INJECTION SITE DISCOLOURATION [None]
  - INJECTION SITE NECROSIS [None]
  - WOUND DEBRIDEMENT [None]
